FAERS Safety Report 9575742 (Version 2)
Quarter: 2013Q4

REPORT INFORMATION
  Report Type: Spontaneous
  Country: US (occurrence: US)
  Receive Date: 20131001
  Receipt Date: 20131001
  Transmission Date: 20140711
  Serious: No
  Sender: FDA-Public Use
  Company Number: US-AMGEN-USASP2012083151

PATIENT
  Age: 47 Year
  Sex: Female

DRUGS (3)
  1. ENBREL [Suspect]
     Indication: RHEUMATOID ARTHRITIS
     Dosage: 50 MG, QWK
     Dates: start: 20121116
  2. ENBREL [Suspect]
     Indication: ARTHRITIS REACTIVE
  3. ENBREL [Suspect]

REACTIONS (2)
  - Accidental exposure to product [Recovered/Resolved]
  - Injection site erythema [Not Recovered/Not Resolved]
